FAERS Safety Report 7322550-0 (Version None)
Quarter: 2011Q1

REPORT INFORMATION
  Report Type: 
  Country: None (occurrence: None)
  Receive Date: 20110301
  Receipt Date: 20110215
  Transmission Date: 20110831
  Serious: Yes (Hospitalization)
  Sender: FDA-Public Use
  Company Number: GB-RANBAXY-2010RR-38056

PATIENT
  Age: 12 Year
  Sex: Female

DRUGS (1)
  1. ACYCLOVIR [Suspect]
     Indication: HERPES VIRUS INFECTION

REACTIONS (3)
  - AGNOSIA [None]
  - MEMORY IMPAIRMENT [None]
  - PSYCHIATRIC SYMPTOM [None]
